FAERS Safety Report 24570755 (Version 1)
Quarter: 2024Q4

REPORT INFORMATION
  Report Type: Spontaneous
  Country: US (occurrence: US)
  Receive Date: 20241101
  Receipt Date: 20241101
  Transmission Date: 20250114
  Serious: Yes (Hospitalization)
  Sender: AMGEN
  Company Number: US-AMGEN-USASP2024214712

PATIENT

DRUGS (1)
  1. PREDNISONE [Suspect]
     Active Substance: PREDNISONE
     Indication: Respiratory tract infection bacterial
     Dosage: UNK
     Route: 065

REACTIONS (2)
  - Respiratory tract infection bacterial [Unknown]
  - Off label use [Unknown]
